FAERS Safety Report 15853389 (Version 1)
Quarter: 2019Q1

REPORT INFORMATION
  Report Type: Spontaneous
  Country: US (occurrence: US)
  Receive Date: 20190120
  Receipt Date: 20190120
  Transmission Date: 20190417
  Serious: Yes (Hospitalization)
  Sender: FDA-Public Use
  Company Number: None

PATIENT
  Sex: Female

DRUGS (2)
  1. HUMIRA [Suspect]
     Active Substance: ADALIMUMAB
     Indication: CROHN^S DISEASE
     Dosage: ?          OTHER FREQUENCY:AT WEEK 2;?
     Route: 058
     Dates: start: 20181219, end: 20190120
  2. AZATHIOPRINE TAB 50 MG [Concomitant]

REACTIONS (2)
  - Crohn^s disease [None]
  - Hernia [None]
